FAERS Safety Report 19861031 (Version 8)
Quarter: 2022Q1

REPORT INFORMATION
  Report Type: Report from Study
  Country: BE (occurrence: BE)
  Receive Date: 20210920
  Receipt Date: 20220308
  Transmission Date: 20220423
  Serious: Yes (Hospitalization)
  Sender: FDA-Public Use
  Company Number: BE-NAPPMUNDI-GBR-2021-0090714

PATIENT
  Age: 72 Year
  Sex: Male

DRUGS (101)
  1. OXYCONTIN [Suspect]
     Active Substance: OXYCODONE HYDROCHLORIDE
     Indication: Back pain
     Dosage: 40 MG, PRN
     Route: 048
     Dates: start: 20210823, end: 20210907
  2. OXYCONTIN [Suspect]
     Active Substance: OXYCODONE HYDROCHLORIDE
     Indication: Abdominal pain
  3. RITUXIMAB [Suspect]
     Active Substance: RITUXIMAB
     Indication: Diffuse large B-cell lymphoma stage IV
     Dosage: 375 MG/M2, 1Q3W
     Route: 042
     Dates: start: 20210813
  4. RITUXIMAB [Suspect]
     Active Substance: RITUXIMAB
     Indication: Diffuse large B-cell lymphoma
  5. CYCLOPHOSPHAMIDE [Suspect]
     Active Substance: CYCLOPHOSPHAMIDE
     Indication: Diffuse large B-cell lymphoma stage IV
     Dosage: 750 MG/M2, 1Q3W
     Route: 042
     Dates: start: 20210813
  6. CYCLOPHOSPHAMIDE [Suspect]
     Active Substance: CYCLOPHOSPHAMIDE
     Indication: Diffuse large B-cell lymphoma
  7. DOXORUBICIN HYDROCHLORIDE [Suspect]
     Active Substance: DOXORUBICIN HYDROCHLORIDE
     Indication: Diffuse large B-cell lymphoma
     Dosage: 50 MG/M2, 1Q3W
     Route: 042
     Dates: start: 20210813
  8. VINCRISTINE SULFATE [Suspect]
     Active Substance: VINCRISTINE SULFATE
     Indication: Diffuse large B-cell lymphoma
     Dosage: 1.4 MG/M2, 1Q3W
     Route: 042
     Dates: start: 20210813
  9. OXYCODONE HYDROCHLORIDE [Concomitant]
     Active Substance: OXYCODONE HYDROCHLORIDE
     Indication: Product used for unknown indication
     Dosage: UNK
     Route: 065
     Dates: start: 20210802
  10. OXYCODONE HYDROCHLORIDE [Concomitant]
     Active Substance: OXYCODONE HYDROCHLORIDE
     Dosage: UNK
     Route: 065
     Dates: start: 20210801, end: 20211027
  11. METHYLPREDNISOLONE SODIUM SUCCINATE [Suspect]
     Active Substance: METHYLPREDNISOLONE SODIUM SUCCINATE
     Indication: Diffuse large B-cell lymphoma stage IV
     Dosage: 80 MG, DAILY
     Route: 048
     Dates: start: 20211103, end: 20211105
  12. METHYLPREDNISOLONE SODIUM SUCCINATE [Suspect]
     Active Substance: METHYLPREDNISOLONE SODIUM SUCCINATE
     Dosage: 80 MG, DAILY
     Route: 048
     Dates: start: 20211012, end: 20211015
  13. METHYLPREDNISOLONE SODIUM SUCCINATE [Suspect]
     Active Substance: METHYLPREDNISOLONE SODIUM SUCCINATE
     Dosage: 80 MG, DAILY
     Route: 048
     Dates: start: 20210921, end: 20210924
  14. METHYLPREDNISOLONE SODIUM SUCCINATE [Suspect]
     Active Substance: METHYLPREDNISOLONE SODIUM SUCCINATE
     Dosage: 80 MG, DAILY
     Route: 048
     Dates: start: 20210814, end: 20210817
  15. METHYLPREDNISOLONE SODIUM SUCCINATE [Suspect]
     Active Substance: METHYLPREDNISOLONE SODIUM SUCCINATE
     Dosage: 80 MG, DAILY
     Route: 048
     Dates: start: 20211214, end: 20211217
  16. METHYLPREDNISOLONE SODIUM SUCCINATE [Suspect]
     Active Substance: METHYLPREDNISOLONE SODIUM SUCCINATE
     Dosage: 80 MG, DAILY
     Route: 048
     Dates: start: 20211123, end: 20211126
  17. METHYLPREDNISOLONE SODIUM SUCCINATE [Suspect]
     Active Substance: METHYLPREDNISOLONE SODIUM SUCCINATE
     Dosage: 125 MG, SINGLE
     Route: 042
     Dates: start: 20211011, end: 20211011
  18. METHYLPREDNISOLONE SODIUM SUCCINATE [Suspect]
     Active Substance: METHYLPREDNISOLONE SODIUM SUCCINATE
     Dosage: 125 MG, SINGLE
     Route: 042
     Dates: start: 20210920, end: 20210920
  19. METHYLPREDNISOLONE SODIUM SUCCINATE [Suspect]
     Active Substance: METHYLPREDNISOLONE SODIUM SUCCINATE
     Dosage: 125 MG, SINGLE
     Route: 042
     Dates: start: 20210813, end: 20210813
  20. METHYLPREDNISOLONE SODIUM SUCCINATE [Suspect]
     Active Substance: METHYLPREDNISOLONE SODIUM SUCCINATE
     Dosage: 125 MG, SINGLE
     Route: 042
     Dates: start: 20211213, end: 20211213
  21. METHYLPREDNISOLONE SODIUM SUCCINATE [Suspect]
     Active Substance: METHYLPREDNISOLONE SODIUM SUCCINATE
     Dosage: 125 MG, SINGLE
     Route: 042
     Dates: start: 20211122, end: 20211122
  22. DOXORUBICIN HYDROCHLORIDE [Suspect]
     Active Substance: DOXORUBICIN HYDROCHLORIDE
     Indication: Diffuse large B-cell lymphoma stage IV
     Dosage: 50 MG/M2, 1Q3W
     Route: 042
     Dates: start: 20210813
  23. VINCRISTINE SULFATE [Suspect]
     Active Substance: VINCRISTINE SULFATE
     Indication: Diffuse large B-cell lymphoma stage IV
     Dosage: 1.4 MG/M2, 1Q3W
     Route: 042
     Dates: start: 20210813
  24. CLEMASTINE FUMARATE [Concomitant]
     Active Substance: CLEMASTINE FUMARATE
     Indication: Product used for unknown indication
     Dosage: 2 MG, UNK
     Route: 065
     Dates: start: 20210813, end: 20210830
  25. CLEMASTINE FUMARATE [Concomitant]
     Active Substance: CLEMASTINE FUMARATE
     Dosage: 2 UNK, UNK
     Route: 042
     Dates: start: 20210906, end: 20210906
  26. CLEMASTINE FUMARATE [Concomitant]
     Active Substance: CLEMASTINE FUMARATE
     Dosage: 2 MG, UNK
     Route: 042
     Dates: start: 20210830
  27. CLEMASTINE FUMARATE [Concomitant]
     Active Substance: CLEMASTINE FUMARATE
     Dosage: 2 UNK, UNK
     Route: 042
     Dates: start: 20210813, end: 20210920
  28. CLEMASTINE FUMARATE [Concomitant]
     Active Substance: CLEMASTINE FUMARATE
     Dosage: 2 MG, UNK
     Route: 065
     Dates: start: 20210808
  29. CLEMASTINE FUMARATE [Concomitant]
     Active Substance: CLEMASTINE FUMARATE
     Dosage: 2 MG, UNK
     Route: 042
     Dates: start: 20211213
  30. CLEMASTINE FUMARATE [Concomitant]
     Active Substance: CLEMASTINE FUMARATE
     Dosage: 2 MG, UNK
     Route: 042
     Dates: start: 20211122
  31. CLEMASTINE FUMARATE [Concomitant]
     Active Substance: CLEMASTINE FUMARATE
     Dosage: 2 MG, UNK
     Route: 042
     Dates: start: 20211102
  32. CLEMASTINE FUMARATE [Concomitant]
     Active Substance: CLEMASTINE FUMARATE
     Dosage: 2 MG, UNK
     Route: 042
     Dates: start: 20211011
  33. CLEMASTINE FUMARATE [Concomitant]
     Active Substance: CLEMASTINE FUMARATE
     Dosage: 2 MG, UNK
     Route: 042
     Dates: start: 20210927
  34. CLEMASTINE FUMARATE [Concomitant]
     Active Substance: CLEMASTINE FUMARATE
     Dosage: 2 UNK, UNK
     Route: 042
     Dates: start: 20210920
  35. ACETAMINOPHEN [Concomitant]
     Active Substance: ACETAMINOPHEN
     Indication: Product used for unknown indication
     Dosage: UNK
     Route: 065
     Dates: start: 20210819, end: 20210821
  36. ACETAMINOPHEN [Concomitant]
     Active Substance: ACETAMINOPHEN
     Dosage: 1 G, UNK
     Route: 048
     Dates: start: 20210813, end: 20210830
  37. ACETAMINOPHEN [Concomitant]
     Active Substance: ACETAMINOPHEN
     Dosage: 1 G, UNK
     Route: 065
     Dates: start: 20210813, end: 20210906
  38. ACETAMINOPHEN [Concomitant]
     Active Substance: ACETAMINOPHEN
     Dosage: 1 G, UNK
     Route: 048
     Dates: start: 20210813, end: 20210920
  39. ACETAMINOPHEN [Concomitant]
     Active Substance: ACETAMINOPHEN
     Dosage: 1 G, UNK
     Route: 048
     Dates: start: 20210813, end: 20220103
  40. ACETAMINOPHEN [Concomitant]
     Active Substance: ACETAMINOPHEN
     Dosage: UNK
  41. MEDROL [Concomitant]
     Active Substance: METHYLPREDNISOLONE
     Indication: Product used for unknown indication
     Dosage: 80 MG, UNK
     Route: 065
     Dates: start: 20210831, end: 20210902
  42. MEDROL [Concomitant]
     Active Substance: METHYLPREDNISOLONE
     Dosage: UNK
     Route: 065
     Dates: start: 20210810, end: 20210902
  43. MEDROL [Concomitant]
     Active Substance: METHYLPREDNISOLONE
     Dosage: 80 MG, UNK
     Route: 065
     Dates: start: 20210814, end: 20210817
  44. MEDROL [Concomitant]
     Active Substance: METHYLPREDNISOLONE
     Dosage: UNK
     Route: 048
     Dates: start: 20210907, end: 20210909
  45. MEDROL [Concomitant]
     Active Substance: METHYLPREDNISOLONE
     Dosage: 80 MG, UNK
     Route: 048
     Dates: start: 20210928, end: 20210930
  46. MEDROL [Concomitant]
     Active Substance: METHYLPREDNISOLONE
     Dosage: UNK
     Route: 065
     Dates: start: 20210810, end: 20210812
  47. SOLU-MEDROL [Concomitant]
     Active Substance: METHYLPREDNISOLONE SODIUM SUCCINATE
     Indication: Product used for unknown indication
     Dosage: 80 MG, UNK
     Route: 065
     Dates: start: 20210813, end: 20210906
  48. SOLU-MEDROL [Concomitant]
     Active Substance: METHYLPREDNISOLONE SODIUM SUCCINATE
     Dosage: 80 MG, UNK
     Route: 065
     Dates: start: 20210906, end: 20210906
  49. SOLU-MEDROL [Concomitant]
     Active Substance: METHYLPREDNISOLONE SODIUM SUCCINATE
     Dosage: 80 MG, UNK
     Route: 042
     Dates: start: 20210927
  50. PIPERACILLIN SODIUM\TAZOBACTAM SODIUM [Concomitant]
     Active Substance: PIPERACILLIN SODIUM\TAZOBACTAM SODIUM
     Indication: Product used for unknown indication
     Dosage: UNK
     Route: 065
     Dates: start: 20210824
  51. ENEMA CLEAN [Concomitant]
     Indication: Product used for unknown indication
     Dosage: UNK
     Route: 065
     Dates: start: 20210816, end: 20210816
  52. FASTURTEC [Concomitant]
     Active Substance: RASBURICASE
     Indication: Product used for unknown indication
     Dosage: UNK
     Route: 065
     Dates: start: 20210811, end: 20210815
  53. FUROSEMIDE [Concomitant]
     Active Substance: FUROSEMIDE
     Indication: Product used for unknown indication
     Dosage: UNK
     Route: 065
     Dates: start: 20210811, end: 20210828
  54. SODIUM PICOSULFATE [Concomitant]
     Active Substance: SODIUM PICOSULFATE
     Indication: Product used for unknown indication
     Dosage: UNK
     Route: 065
     Dates: start: 20210808
  55. LIPEGFILGRASTIM [Concomitant]
     Active Substance: LIPEGFILGRASTIM
     Indication: Product used for unknown indication
     Dosage: UNK
     Route: 065
     Dates: start: 20210814, end: 20210814
  56. LIPEGFILGRASTIM [Concomitant]
     Active Substance: LIPEGFILGRASTIM
     Dosage: UNK
     Route: 065
     Dates: start: 20210814, end: 20211103
  57. METHOTREXATE [Concomitant]
     Active Substance: METHOTREXATE
     Indication: Product used for unknown indication
     Dosage: UNK
     Route: 065
     Dates: start: 20210813, end: 20210813
  58. METHOTREXATE [Concomitant]
     Active Substance: METHOTREXATE
     Dosage: UNK
     Route: 065
     Dates: start: 20210813, end: 20211102
  59. ONDANSETRON [Concomitant]
     Active Substance: ONDANSETRON
     Indication: Product used for unknown indication
     Dosage: UNK
     Route: 065
     Dates: start: 20210813, end: 20210814
  60. ONDANSETRON [Concomitant]
     Active Substance: ONDANSETRON
     Dosage: UNK
     Route: 065
     Dates: start: 20210813, end: 20211213
  61. RENEPHO [Concomitant]
     Indication: Product used for unknown indication
     Dosage: UNK
     Route: 065
     Dates: start: 20210814, end: 20210815
  62. ZOFRAN                             /00955301/ [Concomitant]
     Indication: Product used for unknown indication
     Dosage: UNK
     Route: 065
     Dates: start: 20210815, end: 20210815
  63. ACYCLOVIR [Concomitant]
     Active Substance: ACYCLOVIR
     Indication: Product used for unknown indication
     Dosage: UNK
     Route: 065
     Dates: start: 20210813
  64. ALLOPURINOL [Concomitant]
     Active Substance: ALLOPURINOL
     Indication: Product used for unknown indication
     Dosage: UNK
     Route: 065
     Dates: start: 20210809, end: 20211004
  65. BACTRIM [Concomitant]
     Active Substance: SULFAMETHOXAZOLE\TRIMETHOPRIM
     Indication: Product used for unknown indication
     Dosage: UNK
     Route: 065
     Dates: start: 20210813, end: 20211025
  66. BUMETANIDE [Concomitant]
     Active Substance: BUMETANIDE
     Indication: Product used for unknown indication
     Dosage: UNK
     Route: 065
     Dates: start: 20210829, end: 20210830
  67. ENOXAPARIN SODIUM [Concomitant]
     Active Substance: ENOXAPARIN SODIUM
     Indication: Product used for unknown indication
     Dosage: UNK
     Route: 065
     Dates: start: 20210809, end: 20211004
  68. ENOXAPARIN SODIUM [Concomitant]
     Active Substance: ENOXAPARIN SODIUM
     Dosage: UNK
     Route: 065
     Dates: start: 20210809, end: 20220130
  69. FLUCONAZOLE [Concomitant]
     Active Substance: FLUCONAZOLE
     Indication: Product used for unknown indication
     Dosage: UNK
     Route: 065
     Dates: start: 20210813, end: 20210913
  70. FLUCONAZOLE [Concomitant]
     Active Substance: FLUCONAZOLE
     Dosage: UNK
     Route: 065
     Dates: start: 20210813, end: 20210906
  71. FENTANYL [Concomitant]
     Active Substance: FENTANYL
     Indication: Product used for unknown indication
     Dosage: UNK
     Route: 065
     Dates: start: 20210802, end: 20211013
  72. FENTANYL [Concomitant]
     Active Substance: FENTANYL
     Dosage: UNK
     Route: 065
     Dates: start: 20210801, end: 20211027
  73. MOVICOL                            /01749801/ [Concomitant]
     Indication: Product used for unknown indication
     Dosage: UNK
     Route: 065
     Dates: start: 20210808
  74. OMEPRAZOLE [Concomitant]
     Active Substance: OMEPRAZOLE
     Indication: Product used for unknown indication
     Dosage: UNK
     Route: 065
     Dates: start: 20210808
  75. OMEPRAZOLE [Concomitant]
     Active Substance: OMEPRAZOLE
     Dosage: UNK
     Route: 065
     Dates: start: 20210730
  76. CALCIUM CHLORIDE\POTASSIUM CHLORIDE\SODIUM ACETATE\SODIUM CHLORIDE [Concomitant]
     Active Substance: CALCIUM CHLORIDE\POTASSIUM CHLORIDE\SODIUM ACETATE\SODIUM CHLORIDE
     Indication: Product used for unknown indication
     Dosage: UNK
     Route: 042
     Dates: start: 20210823, end: 20210825
  77. LASIX                              /00032601/ [Concomitant]
     Indication: Product used for unknown indication
     Dosage: UNK
     Route: 065
     Dates: start: 20210811, end: 20210828
  78. AMINO ACIDS NOS W/GLUCOSE MONOHYDRATE/LIPIDS [Concomitant]
     Indication: Product used for unknown indication
     Dosage: UNK
     Route: 042
     Dates: start: 20210823, end: 20210825
  79. LIMONADA ROGE [Concomitant]
     Indication: Product used for unknown indication
     Dosage: UNK
     Route: 065
     Dates: start: 20210829, end: 20210829
  80. LIDOCAINE HYDROCHLORIDE [Concomitant]
     Active Substance: LIDOCAINE HYDROCHLORIDE
     Dosage: UNK
     Route: 065
     Dates: start: 20210920, end: 20210920
  81. POTASSIUM PHOSPHATES               /00599901/ [Concomitant]
     Indication: Product used for unknown indication
     Dosage: UNK
     Route: 065
  82. POTASSIUM PHOSPHATE                /00493501/ [Concomitant]
     Indication: Product used for unknown indication
     Dosage: UNK
     Route: 065
     Dates: start: 20210824, end: 20210825
  83. TRAMADOL HYDROCHLORIDE [Concomitant]
     Active Substance: TRAMADOL HYDROCHLORIDE
     Indication: Product used for unknown indication
     Dosage: UNK
     Dates: start: 20210730, end: 20210730
  84. TRAMADOL HYDROCHLORIDE [Concomitant]
     Active Substance: TRAMADOL HYDROCHLORIDE
     Dosage: UNK
     Dates: start: 20210730, end: 20210731
  85. TAMSULOSINE                        /01280301/ [Concomitant]
     Indication: Product used for unknown indication
     Dosage: UNK
     Route: 065
  86. ZYRTEC                             /00884302/ [Concomitant]
     Indication: Product used for unknown indication
     Dosage: 10 MG, UNK
     Route: 048
     Dates: start: 20220103
  87. ZYRTEC                             /00884302/ [Concomitant]
     Dosage: 10 MG, UNK
     Route: 048
     Dates: start: 20211115
  88. ZYRTEC                             /00884302/ [Concomitant]
     Dosage: 10 MG, UNK
     Route: 048
     Dates: start: 20211108
  89. ZYRTEC                             /00884302/ [Concomitant]
     Dosage: 10 MG, UNK
     Route: 048
     Dates: start: 20211025
  90. ZYRTEC                             /00884302/ [Concomitant]
     Dosage: 10 MG, UNK
     Route: 048
     Dates: start: 20211018
  91. ZYRTEC                             /00884302/ [Concomitant]
     Dosage: 10 MG, UNK
     Route: 048
     Dates: start: 20211004
  92. ALDACTONE                          /00006201/ [Concomitant]
     Indication: Product used for unknown indication
     Dosage: UNK
     Dates: start: 20211108
  93. AMLODIPINE [Concomitant]
     Active Substance: AMLODIPINE BESYLATE
     Indication: Product used for unknown indication
     Dosage: UNK
     Dates: start: 20210730, end: 20210730
  94. BORIC ACID [Concomitant]
     Active Substance: BORIC ACID
     Dosage: UNK
     Dates: start: 20211012
  95. CHLORHEXIDINE [Concomitant]
     Active Substance: CHLORHEXIDINE
     Indication: Product used for unknown indication
     Dosage: UNK
     Dates: start: 20211025, end: 20211108
  96. MOMETASONE FUROATE [Concomitant]
     Active Substance: MOMETASONE FUROATE
     Indication: Product used for unknown indication
     Dosage: UNK
     Dates: start: 20211115
  97. LITICAN                            /00690801/ [Concomitant]
     Indication: Product used for unknown indication
     Dosage: UNK
     Dates: start: 20210730
  98. HUMAN RED BLOOD CELL [Concomitant]
     Active Substance: HUMAN RED BLOOD CELL
     Indication: Adverse event
     Dosage: UNK
     Dates: start: 20211018, end: 20211018
  99. OXYGEN [Concomitant]
     Active Substance: OXYGEN
     Indication: Product used for unknown indication
     Dosage: UNK
     Dates: start: 20220129, end: 20220130
  100. UREUM [Concomitant]
     Dosage: UNK
     Dates: start: 20211012
  101. BACLOFEN [Concomitant]
     Active Substance: BACLOFEN
     Indication: Product used for unknown indication
     Dosage: UNK
     Dates: start: 20211213, end: 20211223

REACTIONS (5)
  - Lipase increased [Recovered/Resolved]
  - Urinary retention [Not Recovered/Not Resolved]
  - Dysuria [Recovered/Resolved]
  - Constipation [Recovered/Resolved]
  - Bronchopulmonary aspergillosis [Recovered/Resolved]

NARRATIVE: CASE EVENT DATE: 20210818
